FAERS Safety Report 11194149 (Version 1)
Quarter: 2015Q2

REPORT INFORMATION
  Report Type: Other
  Country: GB (occurrence: GB)
  Receive Date: 20150616
  Receipt Date: 20150616
  Transmission Date: 20150821
  Serious: Yes (Life-Threatening, Hospitalization)
  Sender: FDA-Public Use
  Company Number: GB-ENDO PHARMACEUTICALS INC-2015-001204

PATIENT
  Age: 8 Year
  Sex: Male

DRUGS (10)
  1. ERYTHROMYCIN. [Suspect]
     Active Substance: ERYTHROMYCIN
     Indication: LOWER RESPIRATORY TRACT INFECTION
     Route: 065
  2. AMOXICILLIN CAPSULES [Concomitant]
     Active Substance: AMOXICILLIN
     Indication: LOWER RESPIRATORY TRACT INFECTION
     Route: 065
  3. BACLOFEN TABLETS [Concomitant]
     Active Substance: BACLOFEN
     Indication: PRODUCT USED FOR UNKNOWN INDICATION
     Route: 065
  4. DIAZEPAM TABLETS 5 MG [Concomitant]
     Active Substance: DIAZEPAM
     Indication: PRODUCT USED FOR UNKNOWN INDICATION
     Route: 065
  5. TRIHEXYPHENIDYL HYDROCHLORIDE TABLETS 5MG [Suspect]
     Active Substance: TRIHEXYPHENIDYL HYDROCHLORIDE
     Indication: DROOLING
     Route: 048
  6. TRIHEXYPHENIDYL HYDROCHLORIDE TABLETS 5MG [Suspect]
     Active Substance: TRIHEXYPHENIDYL HYDROCHLORIDE
     Route: 048
  7. DOC-Q-LACE SOFTGEL [Concomitant]
     Active Substance: DOCUSATE SODIUM
     Indication: PRODUCT USED FOR UNKNOWN INDICATION
     Route: 065
  8. CARBAMAZEPINE. [Concomitant]
     Active Substance: CARBAMAZEPINE
     Indication: PRODUCT USED FOR UNKNOWN INDICATION
     Route: 065
  9. LANSOPRAZOLE. [Concomitant]
     Active Substance: LANSOPRAZOLE
     Indication: PRODUCT USED FOR UNKNOWN INDICATION
     Route: 065
  10. NITRAZEPAM [Concomitant]
     Active Substance: NITRAZEPAM
     Indication: PRODUCT USED FOR UNKNOWN INDICATION
     Route: 065

REACTIONS (16)
  - Colonic pseudo-obstruction [Recovered/Resolved]
  - Dyspnoea [None]
  - Abdominal distension [None]
  - Small intestinal obstruction [None]
  - Rhinitis [None]
  - Dry mouth [None]
  - Respiratory rate increased [None]
  - Hypokalaemia [None]
  - Peripheral coldness [None]
  - Acidosis [None]
  - Abdominal adhesions [None]
  - Hypophosphataemia [None]
  - Gastrointestinal stoma output increased [None]
  - Tachycardia [None]
  - Lid sulcus deepened [None]
  - Urine output decreased [None]
